FAERS Safety Report 8397192-9 (Version None)
Quarter: 2012Q2

REPORT INFORMATION
  Report Type: 
  Country: None (occurrence: None)
  Receive Date: 20120530
  Receipt Date: 20120509
  Transmission Date: 20120825
  Serious: Yes (Hospitalization)
  Sender: FDA-Public Use
  Company Number: ES-MERCK-1205ESP00015

PATIENT
  Age: 66 Year
  Sex: Male

DRUGS (6)
  1. PROPRANOLOL HCL [Suspect]
     Indication: VARICES OESOPHAGEAL
     Route: 048
     Dates: start: 20110201
  2. FUROSEMIDE [Suspect]
     Indication: ASCITES
     Route: 048
     Dates: start: 20110228, end: 20110523
  3. SIMVASTATIN [Concomitant]
     Indication: HYPERLIPIDAEMIA
     Route: 048
     Dates: start: 20090301
  4. SPIRONOLACTONE [Concomitant]
     Route: 048
     Dates: start: 20110228, end: 20110429
  5. SPIRONOLACTONE [Suspect]
     Indication: ASCITES
     Route: 048
     Dates: start: 20110429, end: 20110523
  6. HYZAAR [Suspect]
     Indication: HYPERTENSION
     Route: 048
     Dates: start: 20090701, end: 20110523

REACTIONS (2)
  - HEPATIC ENCEPHALOPATHY [None]
  - DRUG INTERACTION [None]
